FAERS Safety Report 5218189-3 (Version None)
Quarter: 2007Q1

REPORT INFORMATION
  Report Type: 
  Country: None (occurrence: None)
  Receive Date: 20061130
  Receipt Date: 20060531
  Transmission Date: 20070707
  Serious: Yes (Other)
  Sender: FDA-Public Use
  Company Number: US_0506118829

PATIENT
  Age: 46 Year
  Sex: Male
  Weight: 83.9 kg

DRUGS (3)
  1. ZYPREXA [Suspect]
     Indication: BIPOLAR DISORDER
     Dosage: ORAL
     Route: 048
     Dates: start: 20000601
  2. FLUOXETINE (FLUOXETINE) (FLUOXETINE (R-FLUOXETINE) [Concomitant]
  3. MIRTAZAPINE [Concomitant]

REACTIONS (15)
  - ANXIETY [None]
  - CONDITION AGGRAVATED [None]
  - DIABETES MELLITUS NON-INSULIN-DEPENDENT [None]
  - DIABETIC COMA [None]
  - DIABETIC KETOACIDOSIS [None]
  - GLYCOSURIA [None]
  - HYPERGLYCAEMIA [None]
  - HYPERINSULINISM [None]
  - HYPERPHAGIA [None]
  - HYPOGLYCAEMIA [None]
  - OBESITY [None]
  - POLYDIPSIA [None]
  - POLYURIA [None]
  - VISION BLURRED [None]
  - WEIGHT DECREASED [None]
